FAERS Safety Report 9034091 (Version 1)
Quarter: 2013Q1

REPORT INFORMATION
  Report Type: Spontaneous
  Country: US (occurrence: None)
  Receive Date: 20130116
  Receipt Date: 20130116
  Transmission Date: 20140127
  Serious: Yes (Hospitalization)
  Sender: FDA-Public Use
  Company Number: None

PATIENT
  Age: 62 Year
  Sex: Female

DRUGS (5)
  1. RECLAST [Suspect]
     Indication: OSTEOPOROSIS
  2. CETIRIZINE [Concomitant]
  3. VIT D3 [Concomitant]
  4. METOPROLOL [Concomitant]
  5. ROSUVASTATIN [Concomitant]

REACTIONS (4)
  - Pyrexia [None]
  - Tremor [None]
  - Chills [None]
  - Myalgia [None]
